FAERS Safety Report 6157669-3 (Version None)
Quarter: 2009Q2

REPORT INFORMATION
  Report Type: 
  Country: None (occurrence: None)
  Receive Date: 20090414
  Receipt Date: 20090414
  Transmission Date: 20091009
  Serious: Yes (Hospitalization)
  Sender: FDA-Public Use
  Company Number: None

PATIENT
  Age: 8 Day
  Sex: Male
  Weight: 3.5 kg

DRUGS (1)
  1. OCTREOTIDE ACETATE [Suspect]
     Indication: HYPOGLYCAEMIA NEONATAL
     Dosage: 2 MICROGRAMS PER KILOGRAM EVERY 6 HOURS IV
     Route: 042
     Dates: start: 20090330, end: 20090404

REACTIONS (2)
  - HAEMATOCHEZIA [None]
  - PNEUMATOSIS INTESTINALIS [None]
